FAERS Safety Report 4561617-7 (Version None)
Quarter: 2005Q1

REPORT INFORMATION
  Report Type: 
  Country: None (occurrence: None)
  Receive Date: 20050121
  Receipt Date: 20041115
  Transmission Date: 20050727
  Serious: Yes (Other)
  Sender: FDA-Public Use
  Company Number: 2004097482

PATIENT
  Age: 44 Year
  Sex: Male

DRUGS (1)
  1. CELEBREX [Suspect]
     Indication: POST PROCEDURAL PAIN
     Dosage: 20 MG 1 IN 1 D

REACTIONS (1)
  - BLOOD PRESSURE INCREASED [None]
